FAERS Safety Report 12741747 (Version 1)
Quarter: 2016Q3

REPORT INFORMATION
  Report Type: Spontaneous
  Country: US (occurrence: US)
  Receive Date: 20160913
  Receipt Date: 20160913
  Transmission Date: 20161109
  Serious: Yes (Other)
  Sender: FDA-Public Use
  Company Number: None

PATIENT
  Age: 29 Year
  Sex: Female

DRUGS (1)
  1. HYDROXYCHLOROQU- INE [Suspect]
     Active Substance: HYDROXYCHLOROQUINE
     Indication: RHEUMATOID ARTHRITIS
     Route: 048
     Dates: start: 20160811, end: 20160913

REACTIONS (4)
  - Hypoaesthesia [None]
  - Paraesthesia [None]
  - Pain [None]
  - Product quality issue [None]

NARRATIVE: CASE EVENT DATE: 20160913
